FAERS Safety Report 18455563 (Version 4)
Quarter: 2020Q4

REPORT INFORMATION
  Report Type: Spontaneous
  Country: JP (occurrence: JP)
  Receive Date: 20201103
  Receipt Date: 20201230
  Transmission Date: 20210114
  Serious: Yes (Hospitalization, Other)
  Sender: FDA-Public Use
  Company Number: JP-AMGEN-JPNSP2020175276

PATIENT
  Age: 73 Year
  Sex: Female

DRUGS (1)
  1. EVENITY [Suspect]
     Active Substance: ROMOSOZUMAB-AQQG
     Indication: OSTEOPOROSIS
     Dosage: 210 MILLIGRAM
     Route: 058
     Dates: start: 20190801, end: 20200820

REACTIONS (6)
  - Blood triglycerides increased [Unknown]
  - Radius fracture [Recovering/Resolving]
  - Therapy non-responder [Unknown]
  - Lumbar vertebral fracture [Recovering/Resolving]
  - Fall [Unknown]
  - Blood chloride increased [Unknown]

NARRATIVE: CASE EVENT DATE: 2019
